APPROVED DRUG PRODUCT: EDECRIN
Active Ingredient: ETHACRYNATE SODIUM
Strength: EQ 50MG BASE/VIAL
Dosage Form/Route: INJECTABLE;INJECTION
Application: N016093 | Product #001 | TE Code: AP
Applicant: BAUSCH HEALTH AMERICAS INC
Approved: Approved Prior to Jan 1, 1982 | RLD: Yes | RS: Yes | Type: RX